FAERS Safety Report 10185683 (Version 1)
Quarter: 2014Q2

REPORT INFORMATION
  Report Type: Spontaneous
  Country: US (occurrence: None)
  Receive Date: 20140520
  Receipt Date: 20140520
  Transmission Date: 20141212
  Serious: Yes (Life-Threatening, Hospitalization)
  Sender: FDA-Public Use
  Company Number: None

PATIENT
  Age: 49 Year
  Sex: Male
  Weight: 105 kg

DRUGS (1)
  1. LABETALOL HYDROCHLORIDE [Suspect]
     Route: 042
     Dates: start: 20140316

REACTIONS (5)
  - Blood pressure decreased [None]
  - Drug ineffective [None]
  - Pulse abnormal [None]
  - Sinus tachycardia [None]
  - Ventricular tachycardia [None]
